FAERS Safety Report 9577486 (Version 1)
Quarter: 2013Q4

REPORT INFORMATION
  Report Type: Spontaneous
  Country: US (occurrence: US)
  Receive Date: 20131001
  Receipt Date: 20131001
  Transmission Date: 20140711
  Serious: No
  Sender: FDA-Public Use
  Company Number: US-AMGEN-USASP2013008266

PATIENT
  Age: 63 Year
  Sex: Female
  Weight: 92.06 kg

DRUGS (10)
  1. ENBREL [Suspect]
     Indication: PSORIATIC ARTHROPATHY
     Dosage: 25 MG, 2 TIMES/WK
     Route: 058
  2. SYNTHROID [Concomitant]
     Dosage: UNK
  3. TRIAMTERENE AND HYDROCHLOROTHIAZID [Concomitant]
     Dosage: UNK
  4. FLUTICASONE [Concomitant]
     Dosage: 50 MUG, UNK
  5. LEXAPRO [Concomitant]
     Dosage: 20 MG, UNK
  6. ADVIL                              /00044201/ [Concomitant]
     Dosage: 200 MG, UNK
  7. BUPROPION [Concomitant]
     Dosage: 150 MG, UNK
  8. MIRAPEX [Concomitant]
     Dosage: 0.5 MG, UNK
  9. VITAMIN D                          /00107901/ [Concomitant]
     Dosage: 1000 UNIT, UNK
  10. HUMIRA [Concomitant]
     Dosage: UNK

REACTIONS (3)
  - Arthralgia [Recovering/Resolving]
  - Joint swelling [Recovering/Resolving]
  - Therapeutic response decreased [Recovering/Resolving]
